FAERS Safety Report 6958602-4 (Version None)
Quarter: 2010Q3

REPORT INFORMATION
  Report Type: 
  Country: None (occurrence: None)
  Receive Date: 20100831
  Receipt Date: 20100823
  Transmission Date: 20110219
  Serious: Yes (Death)
  Sender: FDA-Public Use
  Company Number: JP-ROCHE-723830

PATIENT
  Sex: Female

DRUGS (10)
  1. VALGANCICLOVIR [Suspect]
     Indication: CYTOMEGALOVIRUS INFECTION
     Route: 048
     Dates: end: 20100210
  2. ZITHROMAC [Concomitant]
     Route: 048
     Dates: start: 20090724, end: 20091109
  3. ZITHROMAC [Concomitant]
     Route: 048
     Dates: start: 20091227, end: 20100210
  4. NORVIR [Concomitant]
     Route: 048
     Dates: start: 20090804, end: 20091110
  5. REYATAZ [Concomitant]
     Route: 048
     Dates: start: 20090804, end: 20091110
  6. TRUVADA [Concomitant]
     Dosage: TDD: 1 TAB
     Route: 048
     Dates: start: 20090804, end: 20100210
  7. CLARITHROMYCIN [Concomitant]
     Route: 048
     Dates: start: 20091110, end: 20091226
  8. ETHAMBUTOL HYDROCHLORIDE [Concomitant]
     Dosage: DRUG NAME: EBUTOL
     Route: 048
     Dates: start: 20091110, end: 20100210
  9. ISENTRESS [Concomitant]
     Route: 048
     Dates: start: 20091111, end: 20100210
  10. RIFABUTIN [Concomitant]
     Route: 048

REACTIONS (3)
  - AIDS ENCEPHALOPATHY [None]
  - ATYPICAL MYCOBACTERIAL INFECTION [None]
  - CYTOMEGALOVIRUS VIRAEMIA [None]
